FAERS Safety Report 12355883 (Version 2)
Quarter: 2016Q2

REPORT INFORMATION
  Report Type: Report from Study
  Country: CA (occurrence: CA)
  Receive Date: 20160511
  Receipt Date: 20160525
  Transmission Date: 20160815
  Serious: Yes (Hospitalization)
  Sender: FDA-Public Use
  Company Number: CA-TAKEDA-2016TUS007513

PATIENT
  Age: 37 Year
  Sex: Female

DRUGS (4)
  1. VEDOLIZUMAB [Suspect]
     Active Substance: VEDOLIZUMAB
     Indication: COLITIS ULCERATIVE
     Dosage: 300 MG, UNK
     Route: 042
     Dates: start: 20160414, end: 20160414
  2. CORTIFOAM [Concomitant]
     Active Substance: HYDROCORTISONE ACETATE
  3. INFLIXIMAB [Concomitant]
     Active Substance: INFLIXIMAB
  4. ELAVIL [Concomitant]
     Active Substance: AMITRIPTYLINE HYDROCHLORIDE
     Dosage: 50 MG, UNK

REACTIONS (11)
  - Onychomycosis [Unknown]
  - Back pain [Unknown]
  - Musculoskeletal stiffness [Unknown]
  - Malaise [Unknown]
  - Pyrexia [Unknown]
  - Discomfort [Unknown]
  - Muscular weakness [Unknown]
  - Eczema [Unknown]
  - Dizziness [Unknown]
  - Headache [Unknown]
  - Vertigo [Recovering/Resolving]

NARRATIVE: CASE EVENT DATE: 201604
